FAERS Safety Report 4440231-8 (Version None)
Quarter: 2004Q3

REPORT INFORMATION
  Report Type: 
  Country: None (occurrence: None)
  Receive Date: 20040831
  Receipt Date: 20040831
  Transmission Date: 20050211
  Serious: Yes (Life-Threatening, Hospitalization)
  Sender: FDA-Public Use
  Company Number: None

PATIENT
  Sex: Female
  Weight: 45.3597 kg

DRUGS (1)
  1. MIACALCIN [Suspect]
     Indication: OSTEOPOROSIS
     Dosage: ACTUATION 1 PER DAY NASAL
     Route: 045
     Dates: start: 20040413, end: 20040427

REACTIONS (13)
  - ABDOMINAL PAIN [None]
  - BALANCE DISORDER [None]
  - BLOOD SODIUM DECREASED [None]
  - CONDITION AGGRAVATED [None]
  - DIARRHOEA [None]
  - LIVER DISORDER [None]
  - MEDICATION ERROR [None]
  - METABOLIC DISORDER [None]
  - NOCTURIA [None]
  - POLLAKIURIA [None]
  - SENSORY DISTURBANCE [None]
  - VERTIGO [None]
  - VISUAL ACUITY REDUCED [None]
